FAERS Safety Report 6032937-4 (Version None)
Quarter: 2009Q1

REPORT INFORMATION
  Report Type: 
  Country: None (occurrence: None)
  Receive Date: 20090105
  Receipt Date: 20080909
  Transmission Date: 20090719
  Serious: Yes (Disabling, Other)
  Sender: FDA-Public Use
  Company Number: US-001862

PATIENT
  Age: 71 Year
  Sex: Male
  Weight: 95 kg

DRUGS (19)
  1. PROHANCE [Suspect]
     Indication: ANGIOGRAM
     Dosage: INTRAVENOUS (NOT OTHERWISE SPECIFIED), INTRAVENOUS (NOT OTHERWISE SPECIFIED)
     Route: 042
     Dates: start: 19991023, end: 19991023
  2. PROHANCE [Suspect]
     Indication: NUCLEAR MAGNETIC RESONANCE IMAGING
     Dosage: INTRAVENOUS (NOT OTHERWISE SPECIFIED), INTRAVENOUS (NOT OTHERWISE SPECIFIED)
     Route: 042
     Dates: start: 19991023, end: 19991023
  3. PROHANCE [Suspect]
     Indication: ANGIOGRAM
     Dosage: INTRAVENOUS (NOT OTHERWISE SPECIFIED), INTRAVENOUS (NOT OTHERWISE SPECIFIED)
     Route: 042
     Dates: start: 19991109, end: 19991109
  4. PROHANCE [Suspect]
     Indication: NUCLEAR MAGNETIC RESONANCE IMAGING
     Dosage: INTRAVENOUS (NOT OTHERWISE SPECIFIED), INTRAVENOUS (NOT OTHERWISE SPECIFIED)
     Route: 042
     Dates: start: 19991109, end: 19991109
  5. OMNISCAN [Suspect]
     Indication: ANGIOGRAM
     Dates: start: 20031216, end: 20031216
  6. CONTRAST PRODUCT [Suspect]
     Indication: NUCLEAR MAGNETIC RESONANCE IMAGING
     Dates: start: 20041201, end: 20041201
  7. GADOLINIUM PRODUCT [Suspect]
     Indication: ANGIOGRAM
     Dates: start: 19980922, end: 19980922
  8. OMNIPAQUE 350 [Concomitant]
  9. OMNIPAQUE 300 [Concomitant]
  10. PROZAC [Concomitant]
  11. DOCUSATE (DOCUSATE) [Concomitant]
  12. NEPHRO-VITE (VITAMINS NOS) [Concomitant]
  13. PEPCID [Concomitant]
  14. PREDNISONE TAB [Concomitant]
  15. VISIPAQUE 320 [Concomitant]
  16. CALCIUM (CALCIUM) [Concomitant]
  17. TECHNETIUM TC 99M TSC [Concomitant]
  18. CONTRAST PRODUCT [Concomitant]
  19. CONRAY 43 [Concomitant]

REACTIONS (1)
  - NEPHROGENIC SYSTEMIC FIBROSIS [None]
